FAERS Safety Report 6724487-4 (Version None)
Quarter: 2010Q2

REPORT INFORMATION
  Report Type: 
  Country: None (occurrence: None)
  Receive Date: 20100513
  Receipt Date: 20100501
  Transmission Date: 20101027
  Serious: Yes (Hospitalization)
  Sender: FDA-Public Use
  Company Number: US-ELI_LILLY_AND_COMPANY-US201004006816

PATIENT
  Age: 65 Year
  Sex: Female

DRUGS (6)
  1. CYMBALTA [Suspect]
     Dosage: 20 MG, UNK
     Dates: start: 20100401
  2. METOPROLOL TARTRATE [Concomitant]
  3. PERCOCET [Concomitant]
  4. METFORMIN HYDROCHLORIDE [Concomitant]
  5. DIOVAN [Concomitant]
  6. ATIVAN [Concomitant]

REACTIONS (3)
  - BURNING SENSATION [None]
  - HOSPITALISATION [None]
  - OFF LABEL USE [None]
